FAERS Safety Report 21047431 (Version 1)
Quarter: 2022Q3

REPORT INFORMATION
  Report Type: Spontaneous
  Country: US (occurrence: None)
  Receive Date: 20220705
  Receipt Date: 20220705
  Transmission Date: 20221026
  Serious: Yes (Other)
  Sender: FDA-Public Use
  Company Number: None

PATIENT
  Age: 40 Year
  Sex: Male
  Weight: 76.5 kg

DRUGS (1)
  1. TESTOSTERONE GEL [Suspect]
     Active Substance: TESTOSTERONE
     Indication: Blood testosterone decreased
     Dosage: OTHER QUANTITY : 4 SPRAY(S);?
     Route: 061
     Dates: start: 20200512, end: 20200829

REACTIONS (8)
  - Aphonia [None]
  - Dysphonia [None]
  - Dysphagia [None]
  - Thirst [None]
  - Dizziness [None]
  - Delirium [None]
  - Depression [None]
  - Choking [None]

NARRATIVE: CASE EVENT DATE: 20200830
